FAERS Safety Report 5396161-0 (Version None)
Quarter: 2007Q3

REPORT INFORMATION
  Report Type: 
  Country: None (occurrence: None)
  Receive Date: 20070725
  Receipt Date: 20070712
  Transmission Date: 20080115
  Serious: No
  Sender: FDA-Public Use
  Company Number: ZA-ELI_LILLY_AND_COMPANY-ZA200707002161

PATIENT
  Sex: Male

DRUGS (2)
  1. CIALIS [Suspect]
     Dosage: 20 MG, AS NEEDED
     Route: 048
     Dates: start: 20070101, end: 20070401
  2. CIALIS [Suspect]
     Dosage: 5 MG, AS NEEDED
     Route: 048
     Dates: start: 20070101

REACTIONS (4)
  - EYELID IRRITATION [None]
  - NASAL CONGESTION [None]
  - OPTIC ISCHAEMIC NEUROPATHY [None]
  - VISION BLURRED [None]
